FAERS Safety Report 9132529 (Version 1)
Quarter: 2013Q1

REPORT INFORMATION
  Report Type: Spontaneous
  Country: IT (occurrence: IT)
  Receive Date: 20130301
  Receipt Date: 20130301
  Transmission Date: 20140127
  Serious: Yes (Other)
  Sender: FDA-Public Use
  Company Number: IT-GLAXOSMITHKLINE-B0871429A

PATIENT
  Age: 79 Year
  Sex: Male

DRUGS (1)
  1. CLOBETASOL [Suspect]
     Indication: PARANEOPLASTIC PEMPHIGUS
     Route: 061

REACTIONS (2)
  - Drug dependence [Unknown]
  - Pre-existing disease [Unknown]
